FAERS Safety Report 24725667 (Version 1)
Quarter: 2024Q4

REPORT INFORMATION
  Report Type: Spontaneous
  Country: DE (occurrence: DE)
  Receive Date: 20241212
  Receipt Date: 20241212
  Transmission Date: 20250115
  Serious: Yes (Hospitalization, Other)
  Sender: AUROBINDO
  Company Number: DE-ROCHE-2863233

PATIENT
  Age: 73 Year
  Sex: Female
  Weight: 74 kg

DRUGS (16)
  1. CARBOPLATIN [Suspect]
     Active Substance: CARBOPLATIN
     Indication: Non-small cell lung cancer
     Dosage: 465 MILLIGRAM, FOR 3 WEEKS
     Route: 042
     Dates: start: 20210610
  2. PEMETREXED [Suspect]
     Active Substance: PEMETREXED
     Indication: Non-small cell lung cancer
     Dosage: 910 MILLIGRAM, 3 WEEKS
     Route: 042
     Dates: start: 20210610, end: 20210630
  3. ATEZOLIZUMAB [Suspect]
     Active Substance: ATEZOLIZUMAB
     Indication: Non-small cell lung cancer
     Dosage: DATE OF LAST DOSE PRIOR TO ADVERSE
     Route: 042
     Dates: start: 20210610, end: 20210630
  4. PEMBROLIZUMAB [Suspect]
     Active Substance: PEMBROLIZUMAB
     Dosage: DATE OF LAST DOSE PRIOR TO ADVERSE
     Route: 042
     Dates: start: 20210610
  5. TIRAGOLUMAB [Suspect]
     Active Substance: TIRAGOLUMAB
     Indication: Non-small cell lung cancer
     Dosage: DATE OF LAST DOSE PRIOR TO ADVERSE
     Route: 042
     Dates: start: 20210610, end: 20210630
  6. PANTOPRAZOLE [Concomitant]
     Active Substance: PANTOPRAZOLE
     Indication: Gastrooesophageal reflux disease
     Dosage: 40 MILLIGRAM, ONCE A DAY
     Route: 048
     Dates: start: 202104
  7. LEVOTHYROXINE SODIUM [Concomitant]
     Active Substance: LEVOTHYROXINE SODIUM
     Indication: Hypothyroidism
     Dosage: 50 MICROGRAM, ONCE A DAY
     Route: 048
  8. METAMIZOLE [Concomitant]
     Active Substance: METAMIZOLE
     Indication: Pain
     Dosage: UNK
     Route: 065
  9. MIRTAZAPINE [Concomitant]
     Active Substance: MIRTAZAPINE
     Indication: Restlessness
     Dosage: UNK
     Route: 065
     Dates: start: 20210701
  10. HYDROMORPHONE [Concomitant]
     Active Substance: HYDROMORPHONE
     Indication: Arthralgia
     Dosage: 4 MILLIGRAM, ONCE A DAY
     Route: 048
     Dates: start: 20210701
  11. MOVICOL [Concomitant]
     Active Substance: POLYETHYLENE GLYCOL 3350\POTASSIUM CHLORIDE\SODIUM BICARBONATE\SODIUM CHLORIDE
     Indication: Constipation
     Dosage: UNK
     Route: 065
     Dates: start: 20210702
  12. ONDANSETRON [Concomitant]
     Active Substance: ONDANSETRON
     Indication: Prophylaxis of nausea and vomiting
     Dosage: 8 MILLIGRAM, AS NECESSARY
     Route: 042
     Dates: start: 20210610
  13. DEXAMETHASONE [Concomitant]
     Active Substance: DEXAMETHASONE
     Indication: Product used for unknown indication
     Dosage: 8 MILLIGRAM, AS NECESSARY
     Route: 048
     Dates: start: 20210609
  14. Jonosteril [Concomitant]
     Indication: General physical health deterioration
     Dosage: 1000 MILLILITER, AS NECESSARY
     Route: 042
     Dates: start: 20210629, end: 20210705
  15. Unacid [Concomitant]
     Indication: Product used for unknown indication
     Dosage: UNK
     Route: 065
     Dates: start: 20210629, end: 20210705
  16. VITAMIN B12 [Concomitant]
     Active Substance: CYANOCOBALAMIN
     Indication: Product used for unknown indication
     Dosage: UNK
     Route: 065
     Dates: start: 20210601

REACTIONS (2)
  - Blood creatinine increased [Recovered/Resolved]
  - Pneumonitis [Recovered/Resolved]

NARRATIVE: CASE EVENT DATE: 20210629
